FAERS Safety Report 15317717 (Version 4)
Quarter: 2018Q4

REPORT INFORMATION
  Report Type: Spontaneous
  Country: JP (occurrence: JP)
  Receive Date: 20180824
  Receipt Date: 20181003
  Transmission Date: 20190204
  Serious: Yes (Death, Hospitalization, Other)
  Sender: FDA-Public Use
  Company Number: JP-ALLERGAN-1841375US

PATIENT
  Age: 75 Year
  Sex: Male

DRUGS (2)
  1. MEROPENEM. [Suspect]
     Active Substance: MEROPENEM
     Indication: PATHOGEN RESISTANCE
     Dosage: 0.5 G, BID
     Route: 041
     Dates: start: 20180814, end: 20180817
  2. BOTOX [Suspect]
     Active Substance: ONABOTULINUMTOXINA
     Indication: MUSCLE SPASMS
     Dosage: UNK, SINGLE
     Route: 030
     Dates: start: 20180609, end: 20180609

REACTIONS (6)
  - Cardio-respiratory arrest [Unknown]
  - Pathogen resistance [Fatal]
  - Renal failure [Unknown]
  - Ventricular tachycardia [Unknown]
  - Dehydration [Unknown]
  - Hyperkalaemia [Fatal]

NARRATIVE: CASE EVENT DATE: 20180814
